FAERS Safety Report 5355761-4 (Version None)
Quarter: 2007Q2

REPORT INFORMATION
  Report Type: 
  Country: None (occurrence: None)
  Receive Date: 20070611
  Receipt Date: 20070611
  Transmission Date: 20071010
  Serious: Yes (Hospitalization, Other)
  Sender: FDA-Public Use
  Company Number: None

PATIENT
  Age: 52 Year
  Sex: Female
  Weight: 72.5755 kg

DRUGS (2)
  1. VICKS FORMULA 44 COLD FORMULA [Suspect]
     Indication: COUGH
     Dosage: CUP AS INDICATED IN PRODUCT TWICE A DAY  PO
     Route: 048
     Dates: start: 20070423, end: 20070425
  2. VICKS FORMULA 44 COLD FORMULA [Suspect]
     Indication: NASOPHARYNGITIS
     Dosage: CUP AS INDICATED IN PRODUCT TWICE A DAY  PO
     Route: 048
     Dates: start: 20070423, end: 20070425

REACTIONS (7)
  - ASTHMA [None]
  - DISORIENTATION [None]
  - DIZZINESS [None]
  - DYSARTHRIA [None]
  - HYPERMETROPIA [None]
  - MIGRAINE [None]
  - SOMNOLENCE [None]
